FAERS Safety Report 15897310 (Version 2)
Quarter: 2019Q1

REPORT INFORMATION
  Report Type: Report from Study
  Country: US (occurrence: US)
  Receive Date: 20190131
  Receipt Date: 20190301
  Transmission Date: 20190417
  Serious: Yes (Other)
  Sender: FDA-Public Use
  Company Number: US-INCYTE CORPORATION-2019IN000676

PATIENT

DRUGS (3)
  1. ASPIRIN                            /00002701/ [Concomitant]
     Active Substance: ASPIRIN
     Indication: PRODUCT USED FOR UNKNOWN INDICATION
     Dosage: UNK
     Route: 065
  2. JAKAFI [Suspect]
     Active Substance: RUXOLITINIB
     Dosage: 10 MG, BID
     Route: 048
  3. JAKAFI [Suspect]
     Active Substance: RUXOLITINIB
     Indication: POLYCYTHAEMIA VERA
     Dosage: 10 MG, BID
     Route: 048

REACTIONS (10)
  - Nail discolouration [Unknown]
  - Erythema [Unknown]
  - Insomnia [Unknown]
  - Peripheral swelling [Unknown]
  - Gait disturbance [Unknown]
  - Wound [Unknown]
  - Diverticulum [Unknown]
  - Dyspepsia [Unknown]
  - Wound infection [Unknown]
  - Polyp [Unknown]
